FAERS Safety Report 6278219-7 (Version None)
Quarter: 2009Q3

REPORT INFORMATION
  Report Type: 
  Country: None (occurrence: None)
  Receive Date: 20090722
  Receipt Date: 20090709
  Transmission Date: 20100115
  Serious: Yes (Death)
  Sender: FDA-Public Use
  Company Number: GB-MYLANLABS-2009S1012713

PATIENT
  Age: 70 Year
  Sex: Male

DRUGS (1)
  1. INDOMETHACIN [Suspect]
     Indication: GOUTY TOPHUS
     Route: 065

REACTIONS (3)
  - CARDIAC FAILURE [None]
  - GOUT [None]
  - RENAL IMPAIRMENT [None]
